FAERS Safety Report 6619943-3 (Version None)
Quarter: 2010Q1

REPORT INFORMATION
  Report Type: 
  Country: None (occurrence: None)
  Receive Date: 20100309
  Receipt Date: 20100301
  Transmission Date: 20100710
  Serious: Yes (Other)
  Sender: FDA-Public Use
  Company Number: US-BAYER-201012309BCC

PATIENT
  Sex: Male

DRUGS (2)
  1. ASPIRIN [Suspect]
     Indication: MYOCARDIAL INFARCTION
     Route: 065
  2. PLAVIX [Suspect]
     Indication: MYOCARDIAL INFARCTION
     Route: 065

REACTIONS (1)
  - ULCER HAEMORRHAGE [None]
